FAERS Safety Report 18867905 (Version 6)
Quarter: 2021Q3

REPORT INFORMATION
  Report Type: Report from Study
  Country: FR (occurrence: FR)
  Receive Date: 20210209
  Receipt Date: 20210702
  Transmission Date: 20211014
  Serious: Yes (Life-Threatening, Hospitalization, Other)
  Sender: FDA-Public Use
  Company Number: NVSC2020FR241641

PATIENT
  Age: 48 Year
  Sex: Female
  Weight: 173 kg

DRUGS (12)
  1. BYL719 [Suspect]
     Active Substance: ALPELISIB
     Dosage: 250 MG, QD
     Route: 048
     Dates: start: 20200811, end: 20200827
  2. SEROPLEX [Concomitant]
     Active Substance: ESCITALOPRAM OXALATE
     Indication: DEPRESSION
     Dosage: 10 MG (START DATE REPORTED AS LONG STANDING)
     Route: 065
  3. COUMADINE [Concomitant]
     Active Substance: WARFARIN SODIUM
     Indication: VENTRICULAR TACHYCARDIA
     Dosage: 6 MG (5 THEN 6)
     Route: 065
     Dates: start: 20200811
  4. LYRICA [Concomitant]
     Active Substance: PREGABALIN
     Indication: PAIN
     Dosage: 375 MG (START DATE REPORTED AS LONG STANDING)
     Route: 065
  5. LEVOTHYROX [Concomitant]
     Active Substance: LEVOTHYROXINE
     Indication: HYPOTHYROIDISM
     Dosage: UNK, (START DATE REPORTED AS LONG STANDING)
     Route: 065
  6. TRULICITY [Suspect]
     Active Substance: DULAGLUTIDE
     Indication: DIABETES MELLITUS
     Dosage: 1.5 MG (18 MAY AT 14 H)
     Route: 058
  7. HEPARIN [Concomitant]
     Active Substance: HEPARIN SODIUM
     Indication: COAGULOPATHY
     Dosage: UNK
     Route: 065
  8. BYL719 [Suspect]
     Active Substance: ALPELISIB
     Indication: PIK3CA-ACTIVATED MUTATION
     Dosage: UNK
     Route: 048
     Dates: start: 20190516, end: 20200807
  9. BYL719 [Suspect]
     Active Substance: ALPELISIB
     Dosage: 250 MG, QD
     Route: 048
     Dates: start: 20200923
  10. JANUVIA [Concomitant]
     Active Substance: SITAGLIPTIN PHOSPHATE
     Indication: PRODUCT USED FOR UNKNOWN INDICATION
     Dosage: DOSE: 100 X 1, START DATE REPORTED AS LONG STANDING
     Route: 065
  11. WARFARIN [Concomitant]
     Active Substance: WARFARIN
     Indication: PRODUCT USED FOR UNKNOWN INDICATION
     Dosage: UNK
     Route: 065
  12. ARIXTRA [Concomitant]
     Active Substance: FONDAPARINUX SODIUM
     Indication: PRODUCT USED FOR UNKNOWN INDICATION
     Dosage: 10 OT
     Route: 065
     Dates: start: 20200811, end: 20200826

REACTIONS (6)
  - Intermenstrual bleeding [Recovered/Resolved]
  - Hyperglycaemia [Not Recovered/Not Resolved]
  - Glycosylated haemoglobin increased [Unknown]
  - Diarrhoea [Recovering/Resolving]
  - Haemoperitoneum [Unknown]
  - Frequent bowel movements [Unknown]

NARRATIVE: CASE EVENT DATE: 20200810
